FAERS Safety Report 7647843-9 (Version None)
Quarter: 2011Q3

REPORT INFORMATION
  Report Type: 
  Country: None (occurrence: None)
  Receive Date: 20110726
  Receipt Date: 20110715
  Transmission Date: 20111222
  Serious: Yes (Hospitalization)
  Sender: FDA-Public Use
  Company Number: 985382

PATIENT
  Age: 52 Year
  Sex: Male

DRUGS (5)
  1. SODIUM CHLORIDE [Concomitant]
  2. PHENYTOIN [Suspect]
     Indication: CONVULSION
     Dosage: 250 MG, OTHER
  3. PHENYTOIN [Suspect]
     Indication: PROPHYLAXIS
     Dosage: 250 MG, OTHER
  4. METRONIDAZOLE [Concomitant]
  5. PIPERACILLIN [Concomitant]

REACTIONS (15)
  - CONVULSION [None]
  - FALL [None]
  - RESPIRATORY DISORDER [None]
  - HYDROCEPHALUS [None]
  - TACHYCARDIA [None]
  - HYPERTENSION [None]
  - ALTERED STATE OF CONSCIOUSNESS [None]
  - MULTI-ORGAN DISORDER [None]
  - INCORRECT ROUTE OF DRUG ADMINISTRATION [None]
  - ACCIDENTAL EXPOSURE [None]
  - SEPTIC SHOCK [None]
  - CARDIOVASCULAR DISORDER [None]
  - BRAIN ABSCESS [None]
  - COAGULOPATHY [None]
  - RENAL IMPAIRMENT [None]
